FAERS Safety Report 12492710 (Version 1)
Quarter: 2016Q2

REPORT INFORMATION
  Report Type: Spontaneous
  Country: US (occurrence: DE)
  Receive Date: 20160623
  Receipt Date: 20160623
  Transmission Date: 20160815
  Serious: Yes (Other)
  Sender: FDA-Public Use
  Company Number: DE-WARNER CHILCOTT, LLC-1054250

PATIENT
  Sex: Female

DRUGS (1)
  1. ACTONEL [Suspect]
     Active Substance: RISEDRONATE SODIUM
     Indication: OSTEOPOROSIS
     Route: 048
     Dates: start: 2015

REACTIONS (6)
  - Dyspepsia [Unknown]
  - Chest pain [Unknown]
  - Pneumonia [Not Recovered/Not Resolved]
  - Glossitis [Unknown]
  - Tongue discolouration [Unknown]
  - Catheterisation cardiac [Unknown]

NARRATIVE: CASE EVENT DATE: 2016
